FAERS Safety Report 9999144 (Version 1)
Quarter: 2014Q1

REPORT INFORMATION
  Report Type: Spontaneous
  Country: US (occurrence: None)
  Receive Date: 20140311
  Receipt Date: 20140311
  Transmission Date: 20141002
  Serious: Yes (Disabling)
  Sender: FDA-Public Use
  Company Number: None

PATIENT
  Age: 58 Year
  Sex: Female
  Weight: 50.8 kg

DRUGS (2)
  1. ZOLPIDEM [Suspect]
     Indication: INSOMNIA
     Dosage: 3/4 PILL AS NEEDED
     Route: 048
     Dates: start: 20130930, end: 20131208
  2. ZOLPIDEM [Suspect]
     Indication: CIRCADIAN RHYTHM SLEEP DISORDER
     Dosage: 3/4 PILL AS NEEDED
     Route: 048
     Dates: start: 20130930, end: 20131208

REACTIONS (7)
  - Eye haemorrhage [None]
  - Eye pain [None]
  - Headache [None]
  - Sinus disorder [None]
  - Burning sensation [None]
  - Open angle glaucoma [None]
  - Visual impairment [None]
